FAERS Safety Report 8427153-2 (Version None)
Quarter: 2012Q2

REPORT INFORMATION
  Report Type: 
  Country: None (occurrence: None)
  Receive Date: 20120531
  Receipt Date: 20120522
  Transmission Date: 20120825
  Serious: Yes (Other)
  Sender: FDA-Public Use
  Company Number: ACO_29860_2012

PATIENT
  Sex: Female
  Weight: 38.6 kg

DRUGS (11)
  1. OXYBUTYNIN [Concomitant]
  2. AMPYRA [Suspect]
     Dosage: 10 MG, QD
  3. HYDROCODONE/ACETAMINOPHEN (HYDROCODONE BITARTRATE, PARACETAMOL) [Concomitant]
  4. AMPYRA [Suspect]
     Indication: PRODUCT USED FOR UNKNOWN INDICATION
     Dosage: 10 MG, BID
     Dates: start: 20110901
  5. AMBIEN [Concomitant]
  6. CORICIDIN II COLD AND FLU (CHLORPHENAMINE MALEATE, DEXTROMETHORPHAN HY [Concomitant]
  7. BELLADONNA AND PHENOBARBITONE (ATROPA BELLADONNA, EXTRACT, PHENOBARBIT [Concomitant]
  8. NAPROSYN [Concomitant]
  9. PREDNISONE [Concomitant]
  10. ZANTAC [Concomitant]
  11. CALCIUM [Concomitant]

REACTIONS (6)
  - CYSTITIS [None]
  - INAPPROPRIATE SCHEDULE OF DRUG ADMINISTRATION [None]
  - GINGIVAL PAIN [None]
  - ACTIVITIES OF DAILY LIVING IMPAIRED [None]
  - BLADDER SPASM [None]
  - CONVULSION [None]
